FAERS Safety Report 8965854 (Version 1)
Quarter: 2012Q4

REPORT INFORMATION
  Report Type: 
  Country: US (occurrence: US)
  Receive Date: 20121217
  Receipt Date: 20121217
  Transmission Date: 20130627
  Serious: No
  Sender: FDA-Public Use
  Company Number: US-ABBOTT-12P-163-0988289-00

PATIENT
  Sex: Female
  Weight: 57.66 kg

DRUGS (7)
  1. TRILIPIX [Suspect]
     Indication: BLOOD TRIGLYCERIDES INCREASED
     Dates: start: 20120909
  2. ASA BABY [Concomitant]
     Indication: PRODUCT USED FOR UNKNOWN INDICATION
  3. BENAZEPRIL [Concomitant]
     Indication: HYPERTENSION
     Dosage: 10mg daily
  4. CILOSTAZOL [Concomitant]
     Indication: PRODUCT USED FOR UNKNOWN INDICATION
     Dosage: 100mg daily
  5. METFORMIN HCL [Concomitant]
     Indication: DIABETES MELLITUS
  6. METOPROLOL [Concomitant]
     Indication: HYPERTENSION
  7. SUTENT [Concomitant]
     Indication: PROPHYLACTIC CHEMOTHERAPY
     Dosage: 25mg daily

REACTIONS (2)
  - Fatigue [Unknown]
  - Diarrhoea [Unknown]
